FAERS Safety Report 7545752-7 (Version None)
Quarter: 2011Q2

REPORT INFORMATION
  Report Type: 
  Country: None (occurrence: None)
  Receive Date: 20110614
  Receipt Date: 20110603
  Transmission Date: 20111010
  Serious: Yes (Disabling, Other)
  Sender: FDA-Public Use
  Company Number: ZA-JNJFOC-20110603432

PATIENT
  Age: 3 Decade

DRUGS (8)
  1. PYRAZINAMIDE [Suspect]
     Indication: TUBERCULOSIS
     Route: 065
  2. PREDNISONE [Suspect]
     Indication: TUBERCULOSIS
     Route: 065
  3. CLARITHROMYCIN [Suspect]
     Indication: TUBERCULOSIS
     Route: 065
  4. DEXAMETHASONE [Suspect]
     Indication: TUBERCULOSIS
     Route: 065
  5. ETHIONAMIDE [Suspect]
     Indication: TUBERCULOSIS
     Route: 065
  6. AMIKACIN [Suspect]
     Indication: TUBERCULOSIS
     Route: 065
  7. OFLOXACIN [Suspect]
     Indication: TUBERCULOSIS
     Route: 065
  8. VALPROATE SODIUM [Suspect]
     Indication: TUBERCULOSIS
     Route: 065

REACTIONS (4)
  - DEAFNESS [None]
  - URINARY INCONTINENCE [None]
  - PAIN [None]
  - GAIT DISTURBANCE [None]
